FAERS Safety Report 11965454 (Version 1)
Quarter: 2016Q1

REPORT INFORMATION
  Report Type: Spontaneous
  Country: None (occurrence: None)
  Receive Date: 20160125
  Receipt Date: 20160125
  Transmission Date: 20160526
  Serious: Yes (Hospitalization)
  Sender: FDA-Public Use
  Company Number: None

PATIENT

DRUGS (1)
  1. CEVIMELINE HCL 30MG ROXANE LABS [Suspect]
     Active Substance: CEVIMELINE HYDROCHLORIDE
     Indication: SJOGREN^S SYNDROME
     Route: 048
     Dates: start: 20151219, end: 20151223

REACTIONS (14)
  - Rash erythematous [None]
  - Lip swelling [None]
  - Peripheral swelling [None]
  - Tremor [None]
  - Urticaria [None]
  - Musculoskeletal stiffness [None]
  - Periorbital oedema [None]
  - Hypotension [None]
  - Drug ineffective [None]
  - Pruritus [None]
  - Rash pruritic [None]
  - Pain in extremity [None]
  - Chills [None]
  - Swollen tongue [None]

NARRATIVE: CASE EVENT DATE: 20151223
